FAERS Safety Report 23930479 (Version 1)
Quarter: 2024Q2

REPORT INFORMATION
  Report Type: Spontaneous
  Country: JP (occurrence: JP)
  Receive Date: 20240602
  Receipt Date: 20240602
  Transmission Date: 20240716
  Serious: Yes (Death, Hospitalization, Other)
  Sender: FDA-Public Use
  Company Number: JP-002147023-NVSJ2024JP006472

PATIENT
  Age: 79 Year
  Sex: Female
  Weight: 48 kg

DRUGS (4)
  1. ENTRESTO [Suspect]
     Active Substance: SACUBITRIL\VALSARTAN
     Indication: Hypertension
     Dosage: 400 MG
     Route: 048
  2. ATORVASTATIN [Suspect]
     Active Substance: ATORVASTATIN
     Indication: Product used for unknown indication
     Dosage: 20 MG
     Route: 048
  3. AMLODIPINE [Suspect]
     Active Substance: AMLODIPINE BESYLATE
     Indication: Product used for unknown indication
     Dosage: 2.5 MG
     Route: 048
  4. JARDIANCE [Suspect]
     Active Substance: EMPAGLIFLOZIN
     Indication: Product used for unknown indication
     Dosage: 10 MG
     Route: 048

REACTIONS (3)
  - Cardiogenic shock [Fatal]
  - Pneumonia aspiration [Unknown]
  - Sepsis [Unknown]
